FAERS Safety Report 13908329 (Version 2)
Quarter: 2017Q3

REPORT INFORMATION
  Report Type: Spontaneous
  Country: JP (occurrence: JP)
  Receive Date: 20170826
  Receipt Date: 20170828
  Transmission Date: 20171127
  Serious: Yes (Death, Life-Threatening, Other)
  Sender: FDA-Public Use
  Company Number: JP-ROCHE-1722090

PATIENT
  Age: 72 Year
  Sex: Male
  Weight: 57 kg

DRUGS (5)
  1. ELPLAT [Concomitant]
     Active Substance: OXALIPLATIN
     Indication: COLON CANCER
     Dosage: DOSE INTERVAL UNCERTAINTY
     Route: 041
     Dates: start: 20151209, end: 20160109
  2. 5-FU [Concomitant]
     Active Substance: FLUOROURACIL
     Indication: COLON CANCER
     Dosage: DOSE INTERVAL UNCERTAINTY
     Route: 041
     Dates: start: 20151209, end: 20160109
  3. AVASTIN [Suspect]
     Active Substance: BEVACIZUMAB
     Indication: COLON CANCER
     Dosage: TREATMENT LINE: FIRST?COMPLETED TREATMENT CYCLE NUMBER: 3
     Route: 041
     Dates: start: 20151209, end: 20160109
  4. ISOVORIN [Concomitant]
     Active Substance: LEUCOVORIN CALCIUM
     Indication: COLON CANCER
     Dosage: DOSE INTERVAL UNCERTAINTY
     Route: 041
     Dates: start: 20151209, end: 20160109
  5. 5-FU [Concomitant]
     Active Substance: FLUOROURACIL
     Indication: COLON CANCER
     Dosage: DOSE INTERVAL UNCERTAINTY
     Route: 040
     Dates: start: 20151209, end: 20160109

REACTIONS (11)
  - Palmar-plantar erythrodysaesthesia syndrome [Unknown]
  - Colitis [Unknown]
  - Gastrointestinal perforation [Recovered/Resolved with Sequelae]
  - Disseminated intravascular coagulation [Fatal]
  - Peritonitis [Unknown]
  - Sepsis [Fatal]
  - Constipation [Unknown]
  - Peptic ulcer [Unknown]
  - Small intestinal perforation [Fatal]
  - Peritonitis [Fatal]
  - Small intestinal stenosis [Unknown]

NARRATIVE: CASE EVENT DATE: 20151210
